FAERS Safety Report 15245124 (Version 1)
Quarter: 2018Q3

REPORT INFORMATION
  Report Type: Spontaneous
  Country: US (occurrence: US)
  Receive Date: 20180806
  Receipt Date: 20180806
  Transmission Date: 20181010
  Serious: No
  Sender: FDA-Public Use
  Company Number: US-GLAXOSMITHKLINE-US2018138785

PATIENT
  Age: 88 Year
  Sex: Female

DRUGS (1)
  1. VOLTAREN [Suspect]
     Active Substance: DICLOFENAC SODIUM
     Indication: BACK PAIN
     Dosage: UNK

REACTIONS (6)
  - Throat tightness [Unknown]
  - Dyspnoea [Unknown]
  - Heart rate abnormal [Unknown]
  - Product administered at inappropriate site [Unknown]
  - Off label use [Unknown]
  - Anxiety [Unknown]
